FAERS Safety Report 21235987 (Version 3)
Quarter: 2022Q4

REPORT INFORMATION
  Report Type: Spontaneous
  Country: CO (occurrence: CO)
  Receive Date: 20220822
  Receipt Date: 20221004
  Transmission Date: 20230112
  Serious: No
  Sender: FDA-Public Use
  Company Number: CO-AMGEN-COLSP2022140646

PATIENT
  Age: 73 Year
  Sex: Female
  Weight: 55 kg

DRUGS (7)
  1. NEULASTA [Suspect]
     Active Substance: PEGFILGRASTIM
     Indication: Prophylaxis
     Dosage: 6 MILLIGRAM (ON CT DAY 2 (THE DEVICE WAS LODGED IN ABDOMEN REGION THE DAY 1 OF CT))
     Route: 058
     Dates: start: 20220729
  2. NEULASTA [Suspect]
     Active Substance: PEGFILGRASTIM
     Dosage: 6 MILLIGRAM (ON CT DAY 2 (THE DEVICE WAS LODGED IN ABDOMEN REGION THE DAY 1 OF CT))
     Route: 058
  3. CAPECITABINE [Concomitant]
     Active Substance: CAPECITABINE
     Dosage: 1000 MILLIGRAM/SQ. METER, 3 PILLS MORNING 3 PILLS NIGHT, DURING 14 DAYS, 7 DAYS REST
     Route: 048
  4. OXALIPLATIN [Concomitant]
     Active Substance: OXALIPLATIN
     Dosage: 130 MILLIGRAM/SQ. METER, Q3WK
     Route: 042
  5. DEXAMETHASONE [Concomitant]
     Active Substance: DEXAMETHASONE
     Dosage: 12 MILLIGRAM
     Route: 042
  6. ONDANSETRON [Concomitant]
     Active Substance: ONDANSETRON
     Dosage: 16 MILLIGRAM
     Route: 042
  7. FOSAPREPITANT [Concomitant]
     Active Substance: FOSAPREPITANT
     Dosage: 150 MILLIGRAM
     Route: 042

REACTIONS (1)
  - Device occlusion [Unknown]

NARRATIVE: CASE EVENT DATE: 20220730
